FAERS Safety Report 10021214 (Version 1)
Quarter: 2014Q1

REPORT INFORMATION
  Report Type: Spontaneous
  Country: US (occurrence: US)
  Receive Date: 20140319
  Receipt Date: 20140319
  Transmission Date: 20141002
  Serious: No
  Sender: FDA-Public Use
  Company Number: US-PFIZER INC-2014079544

PATIENT
  Age: 77 Year
  Sex: Female

DRUGS (4)
  1. XANAX [Suspect]
     Dosage: UNK
  2. TRAVATAN [Suspect]
     Dosage: UNK
  3. CIPRO [Suspect]
     Dosage: UNK
  4. BACTRIM [Suspect]
     Dosage: UNK

REACTIONS (1)
  - Drug hypersensitivity [Unknown]
